FAERS Safety Report 11195524 (Version 2)
Quarter: 2015Q3

REPORT INFORMATION
  Report Type: Spontaneous
  Country: US (occurrence: US)
  Receive Date: 20150617
  Receipt Date: 20150730
  Transmission Date: 20151125
  Serious: No
  Sender: FDA-Public Use
  Company Number: US-009507513-1505USA010490

PATIENT
  Age: 20 Year
  Sex: Female

DRUGS (1)
  1. NEXPLANON [Suspect]
     Active Substance: ETONOGESTREL
     Indication: CONTRACEPTION
     Dosage: UNK
     Route: 059
     Dates: start: 20150430

REACTIONS (5)
  - Implant site induration [Not Recovered/Not Resolved]
  - Implant site discolouration [Not Recovered/Not Resolved]
  - Implant site scar [Not Recovered/Not Resolved]
  - Medical device complication [Not Recovered/Not Resolved]
  - Implant site hypertrophy [Not Recovered/Not Resolved]

NARRATIVE: CASE EVENT DATE: 2015
